FAERS Safety Report 20370368 (Version 1)
Quarter: 2022Q1

REPORT INFORMATION
  Report Type: Spontaneous
  Country: US (occurrence: None)
  Receive Date: 20220123
  Receipt Date: 20220123
  Transmission Date: 20220423
  Serious: Yes (Life-Threatening, Disabling)
  Sender: FDA-Public Use
  Company Number: None

PATIENT
  Age: 37 Year
  Weight: 67.5 kg

DRUGS (20)
  1. DEXTROAMPHET SACCHARAT, AMPHET ASPARTATE, DEXTROAMPHET SULFATE AND AMP [Suspect]
     Active Substance: AMPHETAMINE ASPARTATE\AMPHETAMINE SULFATE\DEXTROAMPHETAMINE SACCHARATE\DEXTROAMPHETAMINE SULFATE
     Indication: Attention deficit hyperactivity disorder
     Dosage: OTHER QUANTITY : 1 TABLET(S);?FREQUENCY : TWICE A DAY;?
     Route: 048
     Dates: start: 20211222, end: 20220107
  2. AJOVY [Concomitant]
     Active Substance: FREMANEZUMAB-VFRM
  3. BUSPIRONE [Concomitant]
     Active Substance: BUSPIRONE HYDROCHLORIDE
  4. CETIRIZINE [Concomitant]
     Active Substance: CETIRIZINE HYDROCHLORIDE
  5. CHOLESTYRAMINE [Concomitant]
     Active Substance: CHOLESTYRAMINE
  6. CLONAZEPAM [Concomitant]
     Active Substance: CLONAZEPAM
  7. CALCIUM [Concomitant]
     Active Substance: CALCIUM
  8. DICYCLOMINE [Concomitant]
     Active Substance: DICYCLOMINE HYDROCHLORIDE
  9. ATROPINE\DIPHENOXYLATE [Concomitant]
     Active Substance: ATROPINE\DIPHENOXYLATE
  10. FAMOTIDINE [Concomitant]
     Active Substance: FAMOTIDINE
  11. LAMOTRIGINE [Concomitant]
     Active Substance: LAMOTRIGINE
  12. ONDANSETRON [Concomitant]
     Active Substance: ONDANSETRON
  13. PANTOPRAZOLE [Concomitant]
     Active Substance: PANTOPRAZOLE
  14. PROPRANOLOL [Concomitant]
     Active Substance: PROPRANOLOL HYDROCHLORIDE
  15. SUMATRIPTAN [Concomitant]
     Active Substance: SUMATRIPTAN
  16. TOPIRAMATE [Concomitant]
     Active Substance: TOPIRAMATE
  17. TRAZODONE [Concomitant]
     Active Substance: TRAZODONE HYDROCHLORIDE
  18. VITAMIN D3 [Concomitant]
     Active Substance: CHOLECALCIFEROL
  19. BIOTIN [Concomitant]
  20. IRON [Concomitant]
     Active Substance: IRON

REACTIONS (28)
  - Muscle twitching [None]
  - Skin discolouration [None]
  - Erythema [None]
  - Peripheral swelling [None]
  - Rash vesicular [None]
  - Skin haemorrhage [None]
  - Pain in extremity [None]
  - Tremor [None]
  - Seizure [None]
  - Speech disorder [None]
  - Mood altered [None]
  - Fatigue [None]
  - Insomnia [None]
  - Fear [None]
  - Feeling cold [None]
  - Drug hypersensitivity [None]
  - Tooth fracture [None]
  - Bruxism [None]
  - Raynaud^s phenomenon [None]
  - Hypophagia [None]
  - Nausea [None]
  - Gastrointestinal disorder [None]
  - Tinnitus [None]
  - Vertigo [None]
  - Vision blurred [None]
  - Heart rate increased [None]
  - Dizziness [None]
  - Dyspnoea [None]

NARRATIVE: CASE EVENT DATE: 20220107
